FAERS Safety Report 23491134 (Version 2)
Quarter: 2024Q1

REPORT INFORMATION
  Report Type: Report from Study
  Country: US (occurrence: US)
  Receive Date: 20240207
  Receipt Date: 20240311
  Transmission Date: 20240410
  Serious: Yes (Hospitalization, Other)
  Sender: FDA-Public Use
  Company Number: US-ABBVIE-5619182

PATIENT
  Age: 54 Year
  Sex: Male

DRUGS (2)
  1. RINVOQ [Suspect]
     Active Substance: UPADACITINIB
     Indication: Rheumatoid arthritis
     Route: 048
     Dates: start: 20230804
  2. RINVOQ [Suspect]
     Active Substance: UPADACITINIB
     Indication: Rheumatoid arthritis
     Dosage: LAST ADMIN DATE-2023
     Route: 048
     Dates: start: 20230308

REACTIONS (4)
  - Arrhythmia [Recovered/Resolved]
  - Cardiac disorder [Recovering/Resolving]
  - Haematoma [Recovering/Resolving]
  - Eye abrasion [Unknown]

NARRATIVE: CASE EVENT DATE: 20240206
